FAERS Safety Report 16407811 (Version 3)
Quarter: 2020Q2

REPORT INFORMATION
  Report Type: Spontaneous
  Country: FI (occurrence: FI)
  Receive Date: 20190610
  Receipt Date: 20200511
  Transmission Date: 20200713
  Serious: Yes (Hospitalization)
  Sender: FDA-Public Use
  Company Number: FI-CELLTRION INC.-2019FI021747

PATIENT

DRUGS (7)
  1. NACL [Concomitant]
     Active Substance: SODIUM CHLORIDE
     Indication: ADJUVANT THERAPY
     Dosage: 100 ML, BEFORE INITIATION OF RITUXIMAB
     Route: 042
  2. RITUXIMAB (UNKNOWN) [Suspect]
     Active Substance: RITUXIMAB
     Dosage: 500 MG EVERY 6 OR 7 MONTHS
     Route: 041
  3. RITUXIMAB (UNKNOWN) [Suspect]
     Active Substance: RITUXIMAB
     Indication: MULTIPLE SCLEROSIS
     Dosage: 500 MG, EVERY 6 MINUTES
     Route: 042
  4. SOLU-MEDROL [Concomitant]
     Active Substance: METHYLPREDNISOLONE SODIUM SUCCINATE
     Indication: ADJUVANT THERAPY
     Dosage: 250 MG, BEFORE INITIATION OF RITUXIMAB
     Route: 042
  5. RITUXIMAB (UNKNOWN) [Suspect]
     Active Substance: RITUXIMAB
     Dosage: 1000 MG, FIRST DOSE
     Route: 041
  6. PARACETAMOL [Concomitant]
     Active Substance: ACETAMINOPHEN
     Indication: ADJUVANT THERAPY
     Dosage: 1 GRAM, (GIVEN BEFORE 30 MINUTES OR 1/2 HOUR OF RITUXIMAB INFUSION)
     Route: 048
  7. CETIRIZIN [Concomitant]
     Active Substance: CETIRIZINE HYDROCHLORIDE
     Indication: ADJUVANT THERAPY
     Dosage: 10 MG, (GIVEN BEFORE 30 MINUTES OR 1/2 HOUR OF RITUXIMAB INFUSION).
     Route: 048

REACTIONS (5)
  - Neutropenia [Recovered/Resolved]
  - Nausea [Unknown]
  - Leukopenia [Recovered/Resolved]
  - Tooth infection [Recovering/Resolving]
  - Off label use [Unknown]
